FAERS Safety Report 11741881 (Version 5)
Quarter: 2016Q1

REPORT INFORMATION
  Report Type: Report from Study
  Country: ZA (occurrence: ZA)
  Receive Date: 20151116
  Receipt Date: 20160229
  Transmission Date: 20160525
  Serious: Yes (Death, Life-Threatening, Hospitalization)
  Sender: FDA-Public Use
  Company Number: ZA-JNJFOC-20151113069

PATIENT
  Age: 31 Year
  Sex: Female
  Weight: 32 kg

DRUGS (16)
  1. SIRTURO [Suspect]
     Active Substance: BEDAQUILINE FUMARATE
     Indication: TUBERCULOSIS
     Route: 048
     Dates: start: 20151123, end: 20151205
  2. LINEZOLID. [Suspect]
     Active Substance: LINEZOLID
     Indication: TUBERCULOSIS
     Route: 048
     Dates: start: 20151012, end: 20151030
  3. TENOFOVIR [Concomitant]
     Active Substance: TENOFOVIR
     Route: 065
     Dates: start: 20150626
  4. LAMIVUDINE. [Concomitant]
     Active Substance: LAMIVUDINE
     Route: 065
     Dates: start: 20150626
  5. DEPO-PROVERA [Concomitant]
     Active Substance: MEDROXYPROGESTERONE ACETATE
     Route: 065
     Dates: start: 201504
  6. LINEZOLID. [Suspect]
     Active Substance: LINEZOLID
     Indication: TUBERCULOSIS
     Route: 048
     Dates: start: 20151123, end: 20151205
  7. PRETOMANID [Suspect]
     Active Substance: PRETOMANID
     Indication: TUBERCULOSIS
     Route: 048
     Dates: start: 20151012, end: 20151030
  8. AUGMENTIN [Concomitant]
     Active Substance: AMOXICILLIN\CLAVULANATE POTASSIUM
     Route: 065
  9. MYDRIACYL [Concomitant]
     Active Substance: TROPICAMIDE
     Route: 065
     Dates: start: 20151007, end: 20151007
  10. NORMAL SALINE [Concomitant]
     Active Substance: SODIUM CHLORIDE
     Route: 065
     Dates: start: 20151030, end: 20151030
  11. ALUVIA [Concomitant]
     Active Substance: LOPINAVIR\RITONAVIR
     Route: 065
     Dates: start: 20150625
  12. SIRTURO [Suspect]
     Active Substance: BEDAQUILINE FUMARATE
     Indication: TUBERCULOSIS
     Route: 048
     Dates: start: 20151012, end: 20151025
  13. KALETRA [Concomitant]
     Active Substance: LOPINAVIR\RITONAVIR
     Route: 065
     Dates: start: 20150625
  14. AUGMENTIN [Concomitant]
     Active Substance: AMOXICILLIN\CLAVULANATE POTASSIUM
     Route: 065
     Dates: start: 20151123, end: 20151127
  15. SIRTURO [Suspect]
     Active Substance: BEDAQUILINE FUMARATE
     Indication: TUBERCULOSIS
     Route: 048
     Dates: start: 20151026, end: 20151030
  16. PRETOMANID [Suspect]
     Active Substance: PRETOMANID
     Indication: TUBERCULOSIS
     Route: 048
     Dates: start: 20151123, end: 20151205

REACTIONS (2)
  - Anaemia [Recovered/Resolved]
  - Pulmonary tuberculosis [Fatal]

NARRATIVE: CASE EVENT DATE: 20151031
